FAERS Safety Report 4608889-8 (Version None)
Quarter: 2005Q1

REPORT INFORMATION
  Report Type: 
  Country: None (occurrence: None)
  Receive Date: 20050315
  Receipt Date: 20050221
  Transmission Date: 20050727
  Serious: Yes (Other)
  Sender: FDA-Public Use
  Company Number: PHEH2005US03057

PATIENT
  Sex: 0

DRUGS (1)
  1. GLEEVEC [Suspect]
     Indication: GASTROINTESTINAL STROMAL TUMOUR
     Dosage: UNK, UNK

REACTIONS (1)
  - PANCREATIC CARCINOMA [None]
